FAERS Safety Report 6662043-7 (Version None)
Quarter: 2010Q1

REPORT INFORMATION
  Report Type: 
  Country: None (occurrence: None)
  Receive Date: 20100331
  Receipt Date: 20100126
  Transmission Date: 20100710
  Serious: No
  Sender: FDA-Public Use
  Company Number: US-BRISTOL-MYERS SQUIBB COMPANY-14949648

PATIENT
  Age: 68 Year
  Sex: Female
  Weight: 74 kg

DRUGS (4)
  1. ERBITUX [Suspect]
     Indication: NEOPLASM MALIGNANT
     Dosage: INTERRUPTED ON SEP2009.
     Dates: start: 20090101
  2. CAMPTOSAR [Suspect]
     Indication: NEOPLASM MALIGNANT
  3. FLUOROURACIL [Suspect]
     Indication: NEOPLASM MALIGNANT
  4. LEUCOVORIN CALCIUM [Suspect]
     Indication: NEOPLASM MALIGNANT

REACTIONS (5)
  - COORDINATION ABNORMAL [None]
  - DERMATITIS ACNEIFORM [None]
  - HAEMATOCHEZIA [None]
  - NEUROPATHY PERIPHERAL [None]
  - VISION BLURRED [None]
